FAERS Safety Report 4920505-4 (Version None)
Quarter: 2006Q1

REPORT INFORMATION
  Report Type: 
  Country: None (occurrence: None)
  Receive Date: 20060223
  Receipt Date: 20051219
  Transmission Date: 20060701
  Serious: Yes (Other)
  Sender: FDA-Public Use
  Company Number: FR-SANOFI-SYNTHELABO-A02200503351

PATIENT
  Age: 64 Year
  Sex: Male

DRUGS (3)
  1. ELOXATIN [Suspect]
     Indication: BILE DUCT CANCER
     Route: 042
  2. FLUOROURACIL [Concomitant]
     Indication: BILE DUCT CANCER
     Route: 042
  3. CALCIUM LEVOFOLINATE [Concomitant]
     Indication: BILE DUCT CANCER
     Route: 042

REACTIONS (4)
  - DEHYDRATION [None]
  - DIARRHOEA [None]
  - RENAL FAILURE [None]
  - STOMATITIS [None]
